FAERS Safety Report 5142732-6 (Version None)
Quarter: 2006Q4

REPORT INFORMATION
  Report Type: 
  Country: None (occurrence: None)
  Receive Date: 20061102
  Receipt Date: 20050922
  Transmission Date: 20070319
  Serious: Yes (Other)
  Sender: FDA-Public Use
  Company Number: 2005UW14206

PATIENT
  Age: 16 Year
  Sex: Male

DRUGS (2)
  1. SEROQUEL [Suspect]
     Route: 048
  2. PAROXETINE HCL [Suspect]

REACTIONS (5)
  - AGGRESSION [None]
  - APNOEA [None]
  - COMA [None]
  - RESPIRATORY DEPRESSION [None]
  - SUICIDE ATTEMPT [None]
